FAERS Safety Report 6662924-4 (Version None)
Quarter: 2010Q2

REPORT INFORMATION
  Report Type: 
  Country: None (occurrence: None)
  Receive Date: 20100401
  Receipt Date: 20100323
  Transmission Date: 20101027
  Serious: Yes (Hospitalization)
  Sender: FDA-Public Use
  Company Number: FR-JNJFOC-20100306566

PATIENT
  Age: 78 Year
  Sex: Female

DRUGS (1)
  1. TAVANIC [Suspect]
     Indication: LUNG DISORDER
     Route: 048

REACTIONS (6)
  - CONTRAINDICATION TO MEDICAL TREATMENT [None]
  - DELIRIUM [None]
  - HALLUCINATION, VISUAL [None]
  - OFF LABEL USE [None]
  - PERSECUTORY DELUSION [None]
  - PSYCHOTIC DISORDER [None]
